FAERS Safety Report 6858895-8 (Version None)
Quarter: 2010Q3

REPORT INFORMATION
  Report Type: 
  Country: None (occurrence: None)
  Receive Date: 20100719
  Receipt Date: 20080217
  Transmission Date: 20110219
  Serious: No
  Sender: FDA-Public Use
  Company Number: US-PFIZER INC-2008016654

PATIENT
  Sex: Male
  Weight: 118.2 kg

DRUGS (10)
  1. CHANTIX [Suspect]
     Dates: start: 20080209
  2. METHADONE HCL [Concomitant]
  3. ULTRAM [Concomitant]
  4. IBUPROFEN [Concomitant]
  5. BUSPAR [Concomitant]
  6. CELEXA [Concomitant]
  7. ANTIHYPERTENSIVES [Concomitant]
  8. CHOLESTEROL- AND TRIGLYCERIDE REDUCERS [Concomitant]
  9. GABAPENTIN [Concomitant]
  10. FOSAMAX [Concomitant]

REACTIONS (1)
  - SOMNOLENCE [None]
